FAERS Safety Report 23695344 (Version 1)
Quarter: 2024Q2

REPORT INFORMATION
  Report Type: Spontaneous
  Country: US (occurrence: US)
  Receive Date: 20240402
  Receipt Date: 20240402
  Transmission Date: 20240716
  Serious: No
  Sender: FDA-Public Use
  Company Number: US-TEVA-VS-3166090

PATIENT
  Sex: Male

DRUGS (1)
  1. UZEDY [Suspect]
     Active Substance: RISPERIDONE
     Indication: Product used for unknown indication
     Dosage: STRENGTH: 125/0.35 MG/ML?SWITCHED THE PATIENT FROM 6 MG OF ORAL RISPERIDONE ONCE A DAY TO UZEDY 1...
     Route: 065

REACTIONS (1)
  - Drug effect less than expected [Unknown]
